FAERS Safety Report 4711582-4 (Version None)
Quarter: 2005Q3

REPORT INFORMATION
  Report Type: 
  Country: None (occurrence: None)
  Receive Date: 20050712
  Receipt Date: 20040713
  Transmission Date: 20060218
  Serious: Yes (Life-Threatening, Hospitalization)
  Sender: FDA-Public Use
  Company Number: 2004AP03602

PATIENT
  Age: 30021 Day
  Sex: Female
  Weight: 45 kg

DRUGS (11)
  1. TENORMIN [Suspect]
     Indication: HYPERTENSION
     Route: 048
     Dates: start: 20040709, end: 20040710
  2. TENORMIN [Suspect]
     Indication: ATRIAL FIBRILLATION
     Route: 048
     Dates: start: 20040709, end: 20040710
  3. LASIX [Concomitant]
     Route: 048
     Dates: end: 20040710
  4. WARFARIN [Concomitant]
     Route: 048
     Dates: end: 20040710
  5. CALSLOT [Concomitant]
     Route: 048
     Dates: end: 20040710
  6. LOXONIN [Concomitant]
     Route: 048
     Dates: end: 20040710
  7. MARZULENE [Concomitant]
     Route: 048
     Dates: end: 20040710
  8. MYSLEE [Concomitant]
     Route: 048
     Dates: end: 20040710
  9. PURSENNID [Concomitant]
     Route: 048
     Dates: end: 20040710
  10. KALIMATE [Concomitant]
     Route: 048
     Dates: end: 20040710
  11. SERMION [Concomitant]
     Route: 048
     Dates: end: 20040710

REACTIONS (9)
  - ALANINE AMINOTRANSFERASE INCREASED [None]
  - ASPARTATE AMINOTRANSFERASE INCREASED [None]
  - BLOOD BICARBONATE DECREASED [None]
  - BLOOD CREATININE INCREASED [None]
  - BLOOD POTASSIUM INCREASED [None]
  - BRADYCARDIA [None]
  - DRUG LEVEL INCREASED [None]
  - DRUG TOXICITY [None]
  - HAEMODIALYSIS [None]
